FAERS Safety Report 6387629-9 (Version None)
Quarter: 2009Q4

REPORT INFORMATION
  Report Type: 
  Country: None (occurrence: None)
  Receive Date: 20091005
  Receipt Date: 20090904
  Transmission Date: 20100525
  Serious: No
  Sender: FDA-Public Use
  Company Number: US-BAYER-200932619NA

PATIENT
  Sex: Female

DRUGS (2)
  1. CIPRO [Suspect]
     Indication: CYSTITIS INTERSTITIAL
     Dosage: TOOK FOR 3 DAYS
  2. CIPRO [Suspect]
     Dates: start: 20030101

REACTIONS (1)
  - CYSTITIS INTERSTITIAL [None]
